FAERS Safety Report 6394307-9 (Version None)
Quarter: 2009Q4

REPORT INFORMATION
  Report Type: 
  Country: None (occurrence: None)
  Receive Date: 20091006
  Receipt Date: 20090921
  Transmission Date: 20100525
  Serious: Yes (Other)
  Sender: FDA-Public Use
  Company Number: 1000009193

PATIENT
  Age: 58 Year
  Sex: Female

DRUGS (2)
  1. ESCITALOPRAM [Suspect]
     Indication: DEPRESSION
     Dosage: 15 MG (15 MG, 1 IN 1 D), ORAL
     Route: 048
     Dates: start: 20080827
  2. MIRTAZAPIN (TABLETS) [Concomitant]

REACTIONS (18)
  - ACTIVITIES OF DAILY LIVING IMPAIRED [None]
  - AFFECT LABILITY [None]
  - BALANCE DISORDER [None]
  - BURNING SENSATION [None]
  - DIZZINESS [None]
  - FEELING ABNORMAL [None]
  - GAIT DISTURBANCE [None]
  - HEADACHE [None]
  - HEART RATE ABNORMAL [None]
  - HYPERHIDROSIS [None]
  - HYPOKINESIA [None]
  - INCONTINENCE [None]
  - MUSCULAR WEAKNESS [None]
  - NAUSEA [None]
  - SALIVARY HYPERSECRETION [None]
  - SPEECH DISORDER [None]
  - TINNITUS [None]
  - TREMOR [None]
